FAERS Safety Report 11757004 (Version 1)
Quarter: 2015Q4

REPORT INFORMATION
  Report Type: Spontaneous
  Country: US (occurrence: US)
  Receive Date: 20151120
  Receipt Date: 20151120
  Transmission Date: 20160304
  Serious: Yes (Other)
  Sender: FDA-Public Use
  Company Number: US-ZYDUS-009525

PATIENT
  Age: 41 Year
  Sex: Female

DRUGS (2)
  1. ANASTROZOLE. [Suspect]
     Active Substance: ANASTROZOLE
     Indication: BREAST CANCER
  2. TRASTUZUMAB [Concomitant]
     Active Substance: TRASTUZUMAB

REACTIONS (1)
  - Drug resistance [Unknown]
